FAERS Safety Report 12468717 (Version 3)
Quarter: 2018Q3

REPORT INFORMATION
  Report Type: Spontaneous
  Country: US (occurrence: US)
  Receive Date: 20160615
  Receipt Date: 20180713
  Transmission Date: 20181010
  Serious: Yes (Hospitalization)
  Sender: FDA-Public Use
  Company Number: US-JNJFOC-20160606021

PATIENT
  Age: 68 Year
  Sex: Female

DRUGS (21)
  1. ESTRACE [Concomitant]
     Active Substance: ESTRADIOL
  2. MAGNESIUM [Concomitant]
     Active Substance: MAGNESIUM
  3. MS CONTIN [Concomitant]
     Active Substance: MORPHINE SULFATE
  4. OXYCODONE [Concomitant]
     Active Substance: OXYCODONE
  5. CYMBALTA [Concomitant]
     Active Substance: DULOXETINE HYDROCHLORIDE
  6. CLARITIN [Concomitant]
     Active Substance: LORATADINE
  7. SENOKOT [Concomitant]
     Active Substance: SENNOSIDES
  8. B?VITAMINS [Concomitant]
  9. DARZALEX [Suspect]
     Active Substance: DARATUMUMAB
     Indication: PLASMA CELL MYELOMA
     Route: 042
  10. BABY ASPIRIN [Concomitant]
     Active Substance: ASPIRIN
  11. SOLU?MEDROL [Concomitant]
     Active Substance: METHYLPREDNISOLONE SODIUM SUCCINATE
  12. LOSARTAN. [Concomitant]
     Active Substance: LOSARTAN
  13. PRILOSEC [Concomitant]
     Active Substance: OMEPRAZOLE MAGNESIUM
  14. COQ10 [Concomitant]
     Active Substance: UBIDECARENONE
  15. KRILL OIL [Concomitant]
     Active Substance: DIETARY SUPPLEMENT
  16. ACYCLOVIR. [Concomitant]
     Active Substance: ACYCLOVIR
  17. VITAMIN D [Concomitant]
     Active Substance: CHOLECALCIFEROL
  18. SIMETHICONE (DIMETHICONE) [Concomitant]
     Active Substance: DIMETHICONE
  19. BACTRIM [Concomitant]
     Active Substance: SULFAMETHOXAZOLE\TRIMETHOPRIM
     Indication: PROPHYLAXIS
  20. VITAMIN C [Concomitant]
     Active Substance: ASCORBIC ACID
  21. NEURONTIN [Concomitant]
     Active Substance: GABAPENTIN

REACTIONS (6)
  - Hypertension [Unknown]
  - Respiratory acidosis [Unknown]
  - Pulseless electrical activity [Unknown]
  - Confusional state [Unknown]
  - Encephalopathy [Unknown]
  - Lactic acidosis [Unknown]
